FAERS Safety Report 6649729-5 (Version None)
Quarter: 2010Q1

REPORT INFORMATION
  Report Type: 
  Country: None (occurrence: None)
  Receive Date: 20100324
  Receipt Date: 20100324
  Transmission Date: 20100710
  Serious: Yes (Hospitalization)
  Sender: FDA-Public Use
  Company Number: None

PATIENT
  Age: 26 Year
  Sex: Female
  Weight: 63.5036 kg

DRUGS (2)
  1. LAMICTAL [Suspect]
     Indication: EPILEPSY
     Dosage: 2 200 MG PILLS 2 TIMES PER DAY PO
     Route: 048
     Dates: start: 20070101, end: 20100319
  2. 5 HOUR ENERGY 2 OZ LIVING ESSENTIALS [Suspect]
     Dosage: 1 BOTTLE 1 TIME PO
     Route: 048
     Dates: start: 20100318, end: 20100318

REACTIONS (5)
  - DIZZINESS [None]
  - DRUG INTERACTION [None]
  - FALL [None]
  - PALPITATIONS [None]
  - TREMOR [None]
